FAERS Safety Report 4495077-1 (Version None)
Quarter: 2004Q4

REPORT INFORMATION
  Report Type: 
  Country: None (occurrence: None)
  Receive Date: 20041108
  Receipt Date: 20041028
  Transmission Date: 20050328
  Serious: Yes (Hospitalization)
  Sender: FDA-Public Use
  Company Number: CA-ABBOTT-04P-028-0279406-00

PATIENT
  Sex: Female
  Weight: 74.91 kg

DRUGS (5)
  1. MAVIK [Suspect]
     Indication: DRUG USE FOR UNKNOWN INDICATION
     Route: 048
  2. INSULIN HUMAN [Concomitant]
     Indication: DIABETES MELLITUS
     Route: 030
     Dates: start: 19840101
  3. INSULIN HUMAN [Concomitant]
     Route: 030
     Dates: start: 19840101
  4. ISOPHANE INSULIN [Concomitant]
     Indication: DIABETES MELLITUS
     Route: 030
     Dates: start: 19840101
  5. ATORVASTATIN [Concomitant]
     Indication: DYSLIPIDAEMIA
     Route: 048
     Dates: start: 20040101

REACTIONS (1)
  - DIABETES MELLITUS [None]
